FAERS Safety Report 4771153-0 (Version None)
Quarter: 2005Q3

REPORT INFORMATION
  Report Type: 
  Country: None (occurrence: None)
  Receive Date: 20050914
  Receipt Date: 20050902
  Transmission Date: 20060218
  Serious: Yes (Hospitalization)
  Sender: FDA-Public Use
  Company Number: TPA2005A01015

PATIENT
  Age: 70 Year
  Sex: Male
  Weight: 98.8842 kg

DRUGS (3)
  1. ACTOS [Suspect]
     Indication: DIABETES MELLITUS NON-INSULIN-DEPENDENT
     Dosage: 45 MG, 1 IN 1 D, PER ORAL
     Route: 048
     Dates: start: 20030902, end: 20050802
  2. GLYBURIDE (GLIBENCLAMIDE) (20 MILLIGRAM) [Concomitant]
  3. DYAZIDE (DYAZIDE) (50 MILLIGRAM) [Concomitant]

REACTIONS (3)
  - CORONARY ARTERY OCCLUSION [None]
  - RENAL DISORDER [None]
  - URINARY TRACT INFECTION [None]
